FAERS Safety Report 5027553-7 (Version None)
Quarter: 2006Q2

REPORT INFORMATION
  Report Type: 
  Country: None (occurrence: None)
  Receive Date: 20060616
  Receipt Date: 20060106
  Transmission Date: 20061013
  Serious: Yes (Hospitalization)
  Sender: FDA-Public Use
  Company Number: US-AMGEN-KDL164070

PATIENT
  Sex: Male

DRUGS (5)
  1. ENBREL [Suspect]
     Indication: RHEUMATOID ARTHRITIS
     Route: 058
     Dates: start: 20051007, end: 20051211
  2. METHOTREXATE [Concomitant]
     Dates: start: 20040101
  3. PREDNISONE [Concomitant]
  4. CELEBREX [Concomitant]
  5. ULTRAM [Concomitant]

REACTIONS (1)
  - HISTOPLASMOSIS DISSEMINATED [None]
